FAERS Safety Report 6089332-1 (Version None)
Quarter: 2009Q1

REPORT INFORMATION
  Report Type: 
  Country: None (occurrence: None)
  Receive Date: 20090224
  Receipt Date: 20090211
  Transmission Date: 20090719
  Serious: Yes (Hospitalization, Other)
  Sender: FDA-Public Use
  Company Number: PHHY2008BR28994

PATIENT
  Age: 32 Year
  Sex: Male
  Weight: 80 kg

DRUGS (3)
  1. TRILEPTAL [Suspect]
     Indication: LENNOX-GASTAUT SYNDROME
     Dosage: 600 MG, TID
     Route: 048
  2. GARDENAL [Suspect]
     Indication: LENNOX-GASTAUT SYNDROME
     Dosage: 100 MG, TID
     Route: 048
  3. RIVOTRIL [Concomitant]
     Indication: LENNOX-GASTAUT SYNDROME
     Dosage: 2 MG, TID
     Route: 048

REACTIONS (9)
  - CONVULSION [None]
  - DRUG INEFFECTIVE [None]
  - ENDOTRACHEAL INTUBATION [None]
  - ERYTHEMA [None]
  - HYPERSENSITIVITY [None]
  - MECHANICAL VENTILATION [None]
  - SEDATION [None]
  - TRACHEOSTOMY [None]
  - WEIGHT DECREASED [None]
